FAERS Safety Report 5203374-7 (Version None)
Quarter: 2007Q1

REPORT INFORMATION
  Report Type: 
  Country: None (occurrence: None)
  Receive Date: 20070110
  Receipt Date: 20070102
  Transmission Date: 20070707
  Serious: Yes (Hospitalization, Other)
  Sender: FDA-Public Use
  Company Number: PHBS2006BE08058

PATIENT
  Age: 67 Year
  Sex: Male

DRUGS (3)
  1. DIOVAN [Suspect]
     Indication: HYPERTENSION
  2. ASCAL [Concomitant]
     Dosage: 100 MG, UNK
  3. QUINAPRIL [Suspect]
     Dates: end: 20060925

REACTIONS (29)
  - ABDOMINAL PAIN UPPER [None]
  - ARRHYTHMIA [None]
  - BLOOD PRESSURE INCREASED [None]
  - CARDIAC FAILURE [None]
  - CHROMATURIA [None]
  - COUGH [None]
  - DEPRESSED MOOD [None]
  - DYSGEUSIA [None]
  - DYSKINESIA [None]
  - DYSPNOEA [None]
  - EXTRASYSTOLES [None]
  - FATIGUE [None]
  - FLUID RETENTION [None]
  - HYPERHIDROSIS [None]
  - INFLUENZA LIKE ILLNESS [None]
  - INSOMNIA [None]
  - LEFT VENTRICULAR FAILURE [None]
  - MALAISE [None]
  - MITRAL VALVE INCOMPETENCE [None]
  - MYOCARDIAL INFARCTION [None]
  - NAUSEA [None]
  - NERVOUSNESS [None]
  - PYREXIA [None]
  - RALES [None]
  - RHINITIS [None]
  - TINNITUS [None]
  - TREMOR [None]
  - URINE ODOUR ABNORMAL [None]
  - VOMITING [None]
